FAERS Safety Report 25009852 (Version 2)
Quarter: 2025Q1

REPORT INFORMATION
  Report Type: Spontaneous
  Country: HK (occurrence: HK)
  Receive Date: 20250225
  Receipt Date: 20250321
  Transmission Date: 20250409
  Serious: Yes (Other)
  Sender: RANBAXY
  Company Number: HK-SUN PHARMACEUTICAL INDUSTRIES LTD-2025R1-495427

PATIENT
  Sex: Female

DRUGS (1)
  1. IRON ISOMALTOSIDE 1000 [Suspect]
     Active Substance: IRON ISOMALTOSIDE 1000
     Indication: Product used for unknown indication
     Route: 065

REACTIONS (4)
  - Exposure during pregnancy [Unknown]
  - Bradycardia foetal [Unknown]
  - Acidosis [Unknown]
  - Dyspnoea [Unknown]
